FAERS Safety Report 4273325-0 (Version None)
Quarter: 2004Q1

REPORT INFORMATION
  Report Type: 
  Country: None (occurrence: None)
  Receive Date: 20040114
  Receipt Date: 20031230
  Transmission Date: 20041129
  Serious: Yes (Other)
  Sender: FDA-Public Use
  Company Number: FRA-2002-007515

PATIENT
  Age: 38 Year
  Sex: Female

DRUGS (3)
  1. JASMINE(ETHINYLESTRADIOL, DROSPIRENONE) FILM TABLET [Suspect]
     Indication: ORAL CONTRACEPTION
     Dosage: 1 TAB(S), 21D/28D, ORAL
     Route: 048
     Dates: start: 20020601, end: 20030501
  2. RHINADVIL (PSEUDOEPHEDRINE HYDROCHLORIDE) [Suspect]
     Indication: NASOPHARYNGITIS
     Dates: start: 20020919, end: 20020924
  3. DOLI RHUME /FRA/(PSEUDOEPHEDRINE HYDROCHLORIDE) [Suspect]
     Indication: NASOPHARYNGITIS
     Dosage: ORAL
     Route: 048
     Dates: start: 20020919, end: 20020924

REACTIONS (11)
  - C-REACTIVE PROTEIN INCREASED [None]
  - DRUG TOXICITY [None]
  - FOOD AVERSION [None]
  - GASTROINTESTINAL DISORDER [None]
  - MIGRAINE [None]
  - MYOPIA [None]
  - NASOPHARYNGITIS [None]
  - NAUSEA [None]
  - OEDEMATOUS PANCREATITIS [None]
  - VERTIGO [None]
  - VOMITING [None]
